FAERS Safety Report 24742543 (Version 1)
Quarter: 2024Q4

REPORT INFORMATION
  Report Type: Spontaneous
  Country: ES (occurrence: ES)
  Receive Date: 20241217
  Receipt Date: 20241217
  Transmission Date: 20250115
  Serious: Yes (Other)
  Sender: TEVA
  Company Number: None

PATIENT
  Age: 43 Year
  Sex: Female

DRUGS (12)
  1. TOPIRAMATE [Suspect]
     Active Substance: TOPIRAMATE
     Indication: Migraine
     Dosage: 25.0 MG A-DECE, TOPIRAMATE RATIOPHARM, FILM-COATED TABLETS EFG, 28 TABLETS (BLISTER)
     Route: 048
     Dates: start: 20241114
  2. BISOPROLOL FUMARATE [Concomitant]
     Active Substance: BISOPROLOL FUMARATE
     Indication: Muscle spasms
     Dosage: 2.5 MG DE, 28 TABLETS (PVC/PVDC-ALUMINUM BLISTER)
     Route: 048
     Dates: start: 20240608
  3. LOSARTAN POTASSIUM [Concomitant]
     Active Substance: LOSARTAN POTASSIUM
     Indication: Acute myocardial infarction
     Dosage: 12.5 MG CE, FILM-COATED TABLETS EFG, 7 TABLETS
     Route: 048
     Dates: start: 20230902
  4. TOPIRAMATO CINFA [Concomitant]
     Indication: Migraine
     Dosage: 50.0 MG A-DECE, FILM-COATED TABLETS EFG, 60 TABLETS (BOTTLE)
     Route: 048
     Dates: start: 20241114
  5. ASPIRIN [Concomitant]
     Active Substance: ASPIRIN
     Indication: Acute myocardial infarction
     Dosage: 100.0 MG OF, GASTRORE-RESISTANT EFG TABLETS, 30 TABLETS (PVC-ALUMINUM)
     Route: 048
     Dates: start: 20201114
  6. NAPROXENO SODICO CINFA [Concomitant]
     Indication: Migraine
     Dosage: 550.0 MG DECE, 40 TABLETS
     Route: 048
     Dates: start: 20241114
  7. NORETHINDRONE ACETATE [Concomitant]
     Active Substance: NORETHINDRONE ACETATE
     Indication: Anaemia
     Dosage: 30 TABLETS
     Route: 048
     Dates: start: 20230523
  8. OMEPRAZOL VIATRIS [Concomitant]
     Indication: Acute myocardial infarction
     Dosage: 20.0 MG A-DE, HARD GASTRORE-RESISTANT CAPSULES EFG, 56 CAPSULES (BOTTLE)
     Route: 048
     Dates: start: 20201114
  9. ATORVASTATIN CALCIUM [Concomitant]
     Active Substance: ATORVASTATIN CALCIUM
     Indication: Acute myocardial infarction
     Dosage: 20.0 MG OF, FILM-COATED TABLETS EFG, 28 TABLETS
     Route: 048
     Dates: start: 20201113
  10. CHOLECALCIFEROL [Concomitant]
     Active Substance: CHOLECALCIFEROL
     Indication: Seborrhoeic dermatitis
     Dosage: 25000.0 IU/14 DAYS, 25,000 IU/2.5 ML, 4 BOTTLES OF 2.5 ML
     Route: 048
     Dates: start: 20241002
  11. CICLOPIROX OLAMINE [Concomitant]
     Active Substance: CICLOPIROX OLAMINE
     Indication: Seborrhoeic dermatitis
     Dosage: 2.0 APPLICATION C/72 HOURS, CICLOPIROX OLAMINA ISDIN, 1 BOTTLE OF 100 ML
     Route: 061
     Dates: start: 20241106
  12. PARACETAMOL KERN PHARMA [Concomitant]
     Indication: Migraine
     Dosage: 1.0 G DECOCE, 40 TABLETS
     Route: 048
     Dates: start: 20171123

REACTIONS (1)
  - Headache [Not Recovered/Not Resolved]

NARRATIVE: CASE EVENT DATE: 20241114
